FAERS Safety Report 14728012 (Version 1)
Quarter: 2018Q2

REPORT INFORMATION
  Report Type: Spontaneous
  Country: US (occurrence: US)
  Receive Date: 20180406
  Receipt Date: 20180406
  Transmission Date: 20180711
  Serious: Yes (Death)
  Sender: FDA-Public Use
  Company Number: US-PFIZER INC-2018139809

PATIENT
  Age: 86 Year
  Sex: Female
  Weight: 58 kg

DRUGS (1)
  1. ESTRING [Suspect]
     Active Substance: ESTRADIOL
     Indication: UTERINE PROLAPSE
     Dosage: UNK (RING INSERTED VAGINALLY EVERY OTHER MONTH)
     Route: 067

REACTIONS (2)
  - Product use in unapproved indication [Unknown]
  - Ischaemic cardiomyopathy [Fatal]
